FAERS Safety Report 4422373-6 (Version None)
Quarter: 2004Q3

REPORT INFORMATION
  Report Type: 
  Country: None (occurrence: None)
  Receive Date: 20040810
  Receipt Date: 20040729
  Transmission Date: 20050211
  Serious: Yes (Other)
  Sender: FDA-Public Use
  Company Number: US-JNJFOC-20040800595

PATIENT
  Sex: Female
  Weight: 83.01 kg

DRUGS (4)
  1. REMICADE [Suspect]
     Indication: RHEUMATOID ARTHRITIS
     Route: 042
  2. MAXZIDE [Concomitant]
  3. MAXZIDE [Concomitant]
     Dosage: 50-75MG DAILY
  4. ATENOLOL [Concomitant]
     Indication: HYPERTENSION

REACTIONS (1)
  - BASAL CELL CARCINOMA [None]
